FAERS Safety Report 24956034 (Version 1)
Quarter: 2025Q1

REPORT INFORMATION
  Report Type: Spontaneous
  Country: US (occurrence: US)
  Receive Date: 20250211
  Receipt Date: 20250211
  Transmission Date: 20250409
  Serious: No
  Sender: TOLMAR
  Company Number: US-TOLMAR, INC.-25US056050

PATIENT
  Sex: Male

DRUGS (1)
  1. JATENZO [Suspect]
     Active Substance: TESTOSTERONE UNDECANOATE
     Indication: Androgen deficiency
     Route: 048
     Dates: start: 2024

REACTIONS (6)
  - Insomnia [Not Recovered/Not Resolved]
  - Dysgeusia [Not Recovered/Not Resolved]
  - Weight decreased [Unknown]
  - Product taste abnormal [Not Recovered/Not Resolved]
  - Product odour abnormal [Not Recovered/Not Resolved]
  - Therapeutic response unexpected [Unknown]
